FAERS Safety Report 7201535-9 (Version None)
Quarter: 2010Q4

REPORT INFORMATION
  Report Type: 
  Country: None (occurrence: None)
  Receive Date: 20101229
  Receipt Date: 20101216
  Transmission Date: 20110411
  Serious: Yes (Other)
  Sender: FDA-Public Use
  Company Number: CH-SANOFI-AVENTIS-2010SA078113

PATIENT
  Age: 21 Year
  Sex: Male

DRUGS (8)
  1. FLUDARABINE PHOSPHATE [Suspect]
     Indication: STEM CELL TRANSPLANT
     Route: 065
  2. ATG-FRESENIUS [Suspect]
     Indication: STEM CELL TRANSPLANT
     Route: 042
  3. CYCLOSPORINE [Concomitant]
  4. MYCOPHENOLATE MOFETIL [Concomitant]
  5. GRANULOCYTE COLONY STIMULATING FACTOR [Concomitant]
  6. PENTAMIDINE ISETHIONATE [Concomitant]
  7. AMPHOTERICIN B [Concomitant]
  8. ACYCLOVIR [Concomitant]

REACTIONS (2)
  - ACUTE GRAFT VERSUS HOST DISEASE IN LIVER [None]
  - CHRONIC GRAFT VERSUS HOST DISEASE [None]
